FAERS Safety Report 10192204 (Version 1)
Quarter: 2014Q2

REPORT INFORMATION
  Report Type: Spontaneous
  Country: JP (occurrence: None)
  Receive Date: 20140521
  Receipt Date: 20140521
  Transmission Date: 20141212
  Serious: Yes (Hospitalization)
  Sender: FDA-Public Use
  Company Number: 2014P1004059

PATIENT
  Age: 79 Year
  Sex: Male
  Weight: 47 kg

DRUGS (2)
  1. HYDROCHLOROTHIAZIDE [Suspect]
     Indication: HYPERTENSION
     Dates: end: 200702
  2. LOSARTAN [Suspect]
     Indication: HYPERTENSION
     Dates: end: 200702

REACTIONS (5)
  - Vertigo [None]
  - Blood pressure systolic increased [None]
  - Hyponatraemia [None]
  - Hypovolaemia [None]
  - Drug interaction [None]
